FAERS Safety Report 7134119-1 (Version None)
Quarter: 2010Q4

REPORT INFORMATION
  Report Type: 
  Country: None (occurrence: None)
  Receive Date: 20101203
  Receipt Date: 20101125
  Transmission Date: 20110411
  Serious: Yes (Hospitalization)
  Sender: FDA-Public Use
  Company Number: BR-US-EMD SERONO, INC.-7029494

PATIENT
  Sex: Male

DRUGS (7)
  1. REBIF [Suspect]
     Indication: RELAPSING-REMITTING MULTIPLE SCLEROSIS
     Dates: start: 20100601
  2. CLORANA [Concomitant]
  3. NIMODIPINE [Concomitant]
  4. CLOPIDOGREL [Concomitant]
  5. GABAPENTIN [Concomitant]
  6. TEGRETOL [Concomitant]
  7. PAMELOR [Concomitant]

REACTIONS (3)
  - DYSARTHRIA [None]
  - DYSPHAGIA [None]
  - TRANSIENT ISCHAEMIC ATTACK [None]
